FAERS Safety Report 8781210 (Version 1)
Quarter: 2012Q4

REPORT INFORMATION
  Report Type: 
  Country: FR (occurrence: FR)
  Receive Date: 20120913
  Receipt Date: 20120913
  Transmission Date: 20130627
  Serious: Yes (Other)
  Sender: FDA-Public Use
  Company Number: FR-009507513-1209FRA004493

PATIENT

DRUGS (4)
  1. TIENAM 500MG/500MG, POUDRE POUR PERFUSION [Suspect]
  2. CITALOPRAM [Interacting]
  3. OMEPRAZOLE [Interacting]
  4. HEPARIN [Interacting]

REACTIONS (2)
  - Thrombocytopenia [Unknown]
  - Drug interaction [Unknown]
